FAERS Safety Report 21753129 (Version 1)
Quarter: 2022Q4

REPORT INFORMATION
  Report Type: Spontaneous
  Country: US (occurrence: US)
  Receive Date: 20221220
  Receipt Date: 20221220
  Transmission Date: 20230113
  Serious: Yes (Other)
  Sender: FDA-Public Use
  Company Number: US-ORGANON-O2212USA001349

PATIENT
  Sex: Female

DRUGS (1)
  1. NEXPLANON [Suspect]
     Active Substance: ETONOGESTREL
     Dosage: 1 ROD IN LEFT ARM
     Route: 059
     Dates: start: 20220820

REACTIONS (4)
  - Device dislocation [Not Recovered/Not Resolved]
  - Medical device site discomfort [Not Recovered/Not Resolved]
  - Peripheral swelling [Not Recovered/Not Resolved]
  - Complication of device insertion [Not Recovered/Not Resolved]

NARRATIVE: CASE EVENT DATE: 20220101
